FAERS Safety Report 15807113 (Version 1)
Quarter: 2019Q1

REPORT INFORMATION
  Report Type: Spontaneous
  Country: US (occurrence: US)
  Receive Date: 20190110
  Receipt Date: 20190110
  Transmission Date: 20190417
  Serious: No
  Sender: FDA-Public Use
  Company Number: US-HORIZON-ACT-0008-2019

PATIENT
  Age: 13 Year
  Sex: Male

DRUGS (5)
  1. FLUTICASONE. [Concomitant]
     Active Substance: FLUTICASONE
  2. ITRACONAZOLE. [Concomitant]
     Active Substance: ITRACONAZOLE
  3. CEPHALEXIN. [Concomitant]
     Active Substance: CEPHALEXIN
  4. ACTIMMUNE [Suspect]
     Active Substance: INTERFERON GAMMA-1B
     Indication: NEUTROPHIL FUNCTION DISORDER
     Dosage: INJECT 0.31 ML SUBQ TIW
     Route: 058
     Dates: start: 20180629
  5. BUDESONIDE. [Concomitant]
     Active Substance: BUDESONIDE

REACTIONS (1)
  - Headache [Not Recovered/Not Resolved]
